FAERS Safety Report 6694242-2 (Version None)
Quarter: 2010Q2

REPORT INFORMATION
  Report Type: 
  Country: None (occurrence: None)
  Receive Date: 20100423
  Receipt Date: 20100419
  Transmission Date: 20101027
  Serious: No
  Sender: FDA-Public Use
  Company Number: IT-ASTRAZENECA-2010SE17678

PATIENT
  Age: 32292 Day
  Sex: Female

DRUGS (1)
  1. SEROQUEL [Suspect]
     Route: 048
     Dates: start: 20091001, end: 20100401

REACTIONS (1)
  - LEUKOPENIA [None]
